FAERS Safety Report 4359793-4 (Version None)
Quarter: 2004Q2

REPORT INFORMATION
  Report Type: 
  Country: None (occurrence: None)
  Receive Date: 20040518
  Receipt Date: 20040505
  Transmission Date: 20050107
  Serious: Yes (Other)
  Sender: FDA-Public Use
  Company Number: GB-GLAXOSMITHKLINE-B0331920A

PATIENT
  Sex: Male

DRUGS (1)
  1. MALARONE [Suspect]
     Route: 065

REACTIONS (4)
  - ANAEMIA [None]
  - FATIGUE [None]
  - FEELING ABNORMAL [None]
  - PANCYTOPENIA [None]
